FAERS Safety Report 7767791-3 (Version None)
Quarter: 2011Q3

REPORT INFORMATION
  Report Type: 
  Country: None (occurrence: None)
  Receive Date: 20110922
  Receipt Date: 20101117
  Transmission Date: 20111222
  Serious: No
  Sender: FDA-Public Use
  Company Number: US-ASTRAZENECA-2010SE20159

PATIENT
  Age: 20696 Day
  Sex: Female

DRUGS (6)
  1. SEROQUEL [Suspect]
     Indication: BIPOLAR DISORDER
     Route: 048
     Dates: start: 19980101
  2. LITHIUM CARBONATE [Concomitant]
  3. ALLERGY MEDS [Concomitant]
  4. SEROQUEL [Suspect]
     Route: 048
  5. SYNTHROID [Concomitant]
  6. KLONOPIN [Concomitant]

REACTIONS (5)
  - DRUG DEPENDENCE [None]
  - TONIC CLONIC MOVEMENTS [None]
  - DRUG DOSE OMISSION [None]
  - INSOMNIA [None]
  - NERVOUSNESS [None]
